FAERS Safety Report 10534384 (Version 1)
Quarter: 2014Q4

REPORT INFORMATION
  Report Type: Spontaneous
  Country: NL (occurrence: NL)
  Receive Date: 20141022
  Receipt Date: 20141022
  Transmission Date: 20150529
  Serious: Yes (Life-Threatening, Hospitalization)
  Sender: FDA-Public Use
  Company Number: NL-009507513-1410NLD010927

PATIENT
  Age: 42 Year
  Sex: Male
  Weight: 72 kg

DRUGS (2)
  1. RIZATRIPTAN MSD 10 MG, TABLETTEN [Suspect]
     Active Substance: RIZATRIPTAN
     Indication: MIGRAINE
     Dosage: 1 TIME A DAY 1 UNIT(S), EXTRA INFO: 10MG
     Route: 048
     Dates: start: 20100801
  2. OMEPRAZOLE. [Suspect]
     Active Substance: OMEPRAZOLE
     Indication: ABDOMINAL DISCOMFORT
     Dosage: 1 TIME A DAY 1 UNIT(S), EXTRA INFO: 40MG
     Route: 048
     Dates: start: 20140526, end: 20140527

REACTIONS (1)
  - Anaphylactic shock [Recovered/Resolved]

NARRATIVE: CASE EVENT DATE: 20140526
